FAERS Safety Report 20672523 (Version 1)
Quarter: 2022Q2

REPORT INFORMATION
  Report Type: Spontaneous
  Country: US (occurrence: US)
  Receive Date: 20220405
  Receipt Date: 20220405
  Transmission Date: 20220721
  Serious: No
  Sender: FDA-Public Use
  Company Number: US-AMGEN-USASP2022058029

PATIENT
  Sex: Male

DRUGS (8)
  1. OTEZLA [Suspect]
     Active Substance: APREMILAST
     Indication: Psoriasis
     Dosage: 30 MILLIGRAM, BID
     Route: 048
  2. FISH OIL [Concomitant]
     Active Substance: FISH OIL
  3. VITAMIN D3 [Concomitant]
     Active Substance: CHOLECALCIFEROL
  4. METFORMIN HYDROCHLORIDE [Concomitant]
     Active Substance: METFORMIN HYDROCHLORIDE
  5. NORVASC [Concomitant]
     Active Substance: AMLODIPINE BESYLATE
  6. SPIRONOLACTONE [Concomitant]
     Active Substance: SPIRONOLACTONE
  7. PROVERA [Concomitant]
     Active Substance: MEDROXYPROGESTERONE ACETATE
  8. COENZYME Q10 [Concomitant]
     Active Substance: DIETARY SUPPLEMENT\UBIDECARENONE

REACTIONS (1)
  - Headache [Not Recovered/Not Resolved]
